FAERS Safety Report 23908876 (Version 1)
Quarter: 2024Q2

REPORT INFORMATION
  Report Type: Spontaneous
  Country: NL (occurrence: NL)
  Receive Date: 20240528
  Receipt Date: 20240528
  Transmission Date: 20240715
  Serious: Yes (Hospitalization)
  Sender: FDA-Public Use
  Company Number: NL-LRB-00976894

PATIENT
  Age: 87 Year
  Sex: Female
  Weight: 61.7 kg

DRUGS (6)
  1. OXCARBAZEPINE [Suspect]
     Active Substance: OXCARBAZEPINE
     Indication: Neuralgia
     Dosage: 300 MG, Q12H (2 X PER DAG 1 STUK)
     Route: 065
     Dates: start: 20221104
  2. OXAZEPAM [Concomitant]
     Active Substance: OXAZEPAM
     Indication: Product used for unknown indication
     Dosage: UNK (TABLET, 10 MG (MILLIGRAM))
     Route: 065
  3. HERBALS\PLANTAGO OVATA LEAF [Concomitant]
     Active Substance: HERBALS\PLANTAGO OVATA LEAF
     Indication: Product used for unknown indication
     Dosage: UNK (ZAKJE (GRANULAAT), 3,25 G (GRAM))
     Route: 065
  4. PANTOPRAZOLE SODIUM [Concomitant]
     Active Substance: PANTOPRAZOLE SODIUM
     Indication: Product used for unknown indication
     Dosage: UNK (MAAGSAPRESISTENTE TABLET, 40 MG (MILLIGRAM))
     Route: 065
  5. SIMVASTATIN [Concomitant]
     Active Substance: SIMVASTATIN
     Indication: Product used for unknown indication
     Dosage: UNK (FILMOMHULDE TABLET, 40 MG (MILLIGRAM))
     Route: 065
  6. SOTALOL [Concomitant]
     Active Substance: SOTALOL
     Indication: Product used for unknown indication
     Dosage: TABLET, 80 MG (MILLIGRAM)
     Route: 065

REACTIONS (1)
  - Pancytopenia [Recovering/Resolving]
